FAERS Safety Report 25878735 (Version 1)
Quarter: 2025Q4

REPORT INFORMATION
  Report Type: Spontaneous
  Country: AF (occurrence: AF)
  Receive Date: 20251003
  Receipt Date: 20251003
  Transmission Date: 20260117
  Serious: Yes (Hospitalization)
  Sender: ACCORD
  Company Number: AF-MLMSERVICE-20250912-PI643899-00289-1

PATIENT
  Age: 69 Year
  Sex: Male

DRUGS (2)
  1. ROPINIROLE [Suspect]
     Active Substance: ROPINIROLE
     Indication: Parkinson^s disease
  2. ROPINIROLE [Suspect]
     Active Substance: ROPINIROLE
     Indication: Parkinson^s disease
     Dosage: WITH SLOW WEEKLY INCREMENTS TO A MAXIMUM DOSE OF 6 MG PER DAY

REACTIONS (1)
  - Jealous delusion [Recovered/Resolved]
